FAERS Safety Report 5351333-6 (Version None)
Quarter: 2007Q2

REPORT INFORMATION
  Report Type: 
  Country: None (occurrence: None)
  Receive Date: 20070608
  Receipt Date: 20070529
  Transmission Date: 20071010
  Serious: Yes (Hospitalization, Other)
  Sender: FDA-Public Use
  Company Number: US-PFIZER INC-2007044520

PATIENT
  Sex: Female
  Weight: 54.09 kg

DRUGS (5)
  1. XALATAN [Suspect]
     Indication: GLAUCOMA
  2. SYNTHROID [Concomitant]
  3. TYLENOL [Concomitant]
  4. CALCIUM CHLORIDE [Concomitant]
  5. IRON [Concomitant]

REACTIONS (4)
  - ALOPECIA [None]
  - CATARACT [None]
  - HAIR TEXTURE ABNORMAL [None]
  - HERPES ZOSTER [None]
